FAERS Safety Report 6051873-0 (Version None)
Quarter: 2009Q1

REPORT INFORMATION
  Report Type: 
  Country: None (occurrence: None)
  Receive Date: 20090126
  Receipt Date: 20051214
  Transmission Date: 20090719
  Serious: Yes (Hospitalization, Other)
  Sender: FDA-Public Use
  Company Number: US-PFIZER INC-2008159859

PATIENT
  Sex: Male
  Weight: 87.98 kg

DRUGS (21)
  1. CELECOXIB [Suspect]
     Indication: ADENOMATOUS POLYPOSIS COLI
     Dosage: 200 MG, 2X/DAY
     Route: 048
     Dates: start: 20010214, end: 20020430
  2. LANSOPRAZOLE [Concomitant]
     Dosage: UNK
     Dates: start: 19990325
  3. METOPROLOL TARTRATE [Concomitant]
     Dosage: UNK
     Dates: start: 20000315
  4. SIMVASTATIN [Concomitant]
     Dosage: UNK
     Dates: start: 19981009
  5. CLONAZEPAM [Concomitant]
     Dosage: UNK
     Dates: start: 19980928
  6. CLOPIDOGREL SULFATE [Concomitant]
     Dosage: UNK
     Dates: start: 19981203
  7. NITROGLYCERIN [Concomitant]
     Dosage: UNK
     Dates: start: 19970419
  8. ZOLPIDEM TARTRATE [Concomitant]
     Dosage: UNK
     Dates: start: 19980928
  9. HYDROCHLOROTHIAZIDE [Concomitant]
     Dosage: UNK
     Dates: start: 20000720
  10. VITAMIN E [Concomitant]
     Dosage: UNK
     Dates: start: 19970417
  11. SIMETHICONE [Concomitant]
     Dosage: UNK
     Dates: start: 19980311
  12. PSYLLIUM [Concomitant]
     Dosage: UNK
     Dates: start: 20001017
  13. TRAZODONE [Concomitant]
     Dosage: UNK
     Dates: start: 20000417
  14. METHOCARBAMOL [Concomitant]
     Dosage: UNK
     Dates: start: 20010417
  15. ASPIRIN [Concomitant]
     Dosage: UNK
  16. LEVOTHYROXINE [Concomitant]
     Dosage: UNK
     Dates: start: 20010227
  17. MILK OF MAGNESIA [Concomitant]
     Dosage: UNK
     Dates: start: 20010705, end: 20010705
  18. FENTANYL [Concomitant]
     Dosage: UNK
     Dates: start: 20010705, end: 20010709
  19. MORPHINE [Concomitant]
     Dosage: UNK
     Dates: start: 20010705, end: 20010709
  20. MIDAZOLAM HYDROCHLORIDE [Concomitant]
     Dosage: UNK
     Dates: start: 20010705, end: 20010709
  21. CITALOPRAM HYDROBROMIDE [Concomitant]
     Dosage: UNK
     Dates: start: 20011111

REACTIONS (1)
  - ANGINA UNSTABLE [None]
